FAERS Safety Report 4749537-6 (Version None)
Quarter: 2005Q3

REPORT INFORMATION
  Report Type: 
  Country: None (occurrence: None)
  Receive Date: 20050819
  Receipt Date: 20050819
  Transmission Date: 20060218
  Serious: Yes (Hospitalization)
  Sender: FDA-Public Use
  Company Number: None

PATIENT
  Age: 70 Year
  Sex: Female
  Weight: 58 kg

DRUGS (1)
  1. TEQUIN [Suspect]
     Indication: PNEUMONIA
     Dosage: 400 MG PO DAILY
     Route: 048
     Dates: start: 20050806, end: 20050815

REACTIONS (2)
  - ASTHENIA [None]
  - HYPERGLYCAEMIA [None]
